FAERS Safety Report 17787544 (Version 2)
Quarter: 2020Q2

REPORT INFORMATION
  Report Type: Spontaneous
  Country: US (occurrence: US)
  Receive Date: 20200514
  Receipt Date: 20200520
  Transmission Date: 20200714
  Serious: Yes (Hospitalization, Other)
  Sender: FDA-Public Use
  Company Number: US-ASTRAZENECA-2020SE61432

PATIENT
  Sex: Male
  Weight: 76.2 kg

DRUGS (13)
  1. BRILINTA [Suspect]
     Active Substance: TICAGRELOR
     Indication: ATRIAL FIBRILLATION
     Route: 048
     Dates: start: 201910
  2. ASPIRIN. [Concomitant]
     Active Substance: ASPIRIN
     Dosage: 81.0MG UNKNOWN
  3. METOPROLOL UNSPECIFIED [Suspect]
     Active Substance: METOPROLOL
     Route: 048
     Dates: start: 201910
  4. BRILINTA [Suspect]
     Active Substance: TICAGRELOR
     Indication: MYOCARDIAL INFARCTION
     Route: 048
  5. NORVASC [Concomitant]
     Active Substance: AMLODIPINE BESYLATE
     Dosage: 5 UNITS
  6. BRILINTA [Suspect]
     Active Substance: TICAGRELOR
     Indication: MYOCARDIAL INFARCTION
     Route: 048
     Dates: start: 201910
  7. BRILINTA [Suspect]
     Active Substance: TICAGRELOR
     Indication: ATRIAL FIBRILLATION
     Route: 048
  8. POTASSIUM [Concomitant]
     Active Substance: POTASSIUM
     Dosage: 20.0MEQ UNKNOWN
  9. ATORVASTATIN [Concomitant]
     Active Substance: ATORVASTATIN
     Dosage: 80.0MG UNKNOWN
  10. ATORVASTATIN [Concomitant]
     Active Substance: ATORVASTATIN
     Dosage: 40.0MG UNKNOWN
  11. VEGETABLE STOOL SOFTENER [Concomitant]
  12. LASIX [Concomitant]
     Active Substance: FUROSEMIDE
     Dosage: 20 UNITS
  13. VIT D [Concomitant]
     Active Substance: VITAMIN D NOS

REACTIONS (10)
  - Peripheral swelling [Unknown]
  - Thyroid hormones increased [Recovered/Resolved]
  - Abdominal discomfort [Unknown]
  - White blood cell count increased [Unknown]
  - Blood cholesterol decreased [Unknown]
  - Tongue haemorrhage [Unknown]
  - Tongue biting [Unknown]
  - Blood calcium increased [Unknown]
  - Haemorrhage [Unknown]
  - Contusion [Unknown]
